FAERS Safety Report 11844878 (Version 1)
Quarter: 2015Q4

REPORT INFORMATION
  Report Type: Report from Study
  Country: US (occurrence: US)
  Receive Date: 20151217
  Receipt Date: 20151217
  Transmission Date: 20160305
  Serious: Yes (Hospitalization)
  Sender: FDA-Public Use
  Company Number: US-UCBSA-2015038204

PATIENT
  Sex: Female

DRUGS (1)
  1. LEVETIRACETAM. [Suspect]
     Active Substance: LEVETIRACETAM
     Indication: PRODUCT USED FOR UNKNOWN INDICATION
     Dosage: UNK

REACTIONS (8)
  - Hypoaesthesia [Unknown]
  - Paraesthesia [Unknown]
  - Irritability [Unknown]
  - Loss of consciousness [Unknown]
  - Depressed mood [Unknown]
  - Hallucination, visual [Unknown]
  - Asthenia [Unknown]
  - Pregnancy [Unknown]

NARRATIVE: CASE EVENT DATE: 201511
